FAERS Safety Report 21929937 (Version 1)
Quarter: 2023Q1

REPORT INFORMATION
  Report Type: Spontaneous
  Country: US (occurrence: US)
  Receive Date: 20230131
  Receipt Date: 20230131
  Transmission Date: 20230418
  Serious: No
  Sender: FDA-Public Use
  Company Number: US-SA-SAC20230126000049

PATIENT
  Age: 26 Year
  Sex: Male

DRUGS (2)
  1. ALPROLIX [Suspect]
     Active Substance: EFTRENONACOG ALFA
     Dosage: 3450 UNITS (+/-10%)
     Route: 065
  2. ALPROLIX [Suspect]
     Active Substance: EFTRENONACOG ALFA
     Dosage: 3450 UNITS (+/-10%)
     Route: 065

REACTIONS (3)
  - Influenza [Unknown]
  - Vomiting [Unknown]
  - Norovirus infection [Unknown]

NARRATIVE: CASE EVENT DATE: 20230123
